FAERS Safety Report 5320917-3 (Version None)
Quarter: 2007Q2

REPORT INFORMATION
  Report Type: 
  Country: None (occurrence: None)
  Receive Date: 20070504
  Receipt Date: 20070424
  Transmission Date: 20071010
  Serious: Yes (Other)
  Sender: FDA-Public Use
  Company Number: S07-UKI-01815-01

PATIENT
  Age: 44 Year
  Sex: Male

DRUGS (3)
  1. ACAMPROSATE [Suspect]
     Indication: ALCOHOL PROBLEM
     Dates: start: 20070320, end: 20070321
  2. CHLORDIAZEPOXIDE [Concomitant]
  3. THIAMINE [Concomitant]

REACTIONS (2)
  - AGGRESSION [None]
  - MOOD SWINGS [None]
